FAERS Safety Report 24117179 (Version 1)
Quarter: 2024Q3

REPORT INFORMATION
  Report Type: Spontaneous
  Country: US (occurrence: US)
  Receive Date: 20240722
  Receipt Date: 20240722
  Transmission Date: 20241016
  Serious: Yes (Other)
  Sender: PADAGIS
  Company Number: US-PADAGIS-2024PAD01165

PATIENT

DRUGS (2)
  1. NALOXONE HYDROCHLORIDE [Suspect]
     Active Substance: NALOXONE HYDROCHLORIDE
     Indication: Overdose
     Dosage: UNK (MULTIPLE DOSES)
     Route: 045
  2. NALOXONE HYDROCHLORIDE [Suspect]
     Active Substance: NALOXONE HYDROCHLORIDE
     Dosage: UNK (MULTIPLE DOSES)
     Route: 042

REACTIONS (1)
  - Pulmonary oedema [Unknown]
